FAERS Safety Report 23439847 (Version 1)
Quarter: 2024Q1

REPORT INFORMATION
  Report Type: Spontaneous
  Country: NL (occurrence: NL)
  Receive Date: 20240124
  Receipt Date: 20240124
  Transmission Date: 20240410
  Serious: Yes (Other)
  Sender: FDA-Public Use
  Company Number: NL-BAUSCH-BL-2024-001008

PATIENT
  Age: 15 Year
  Sex: Female
  Weight: 61 kg

DRUGS (6)
  1. ELIDEL [Suspect]
     Active Substance: PIMECROLIMUS
     Indication: Eczema
     Route: 065
  2. CLOBETASOL [Suspect]
     Active Substance: CLOBETASOL
     Indication: Eczema
     Route: 065
  3. HYDROCORTISONE [Suspect]
     Active Substance: HYDROCORTISONE
     Indication: Eczema
     Dosage: HYDROCORTISON, 1 DOSAGE FORM, MULTIPLE TIMES A DAY, DURATION: 9 YEARS 8 MONTHS 1 DAY
     Route: 065
     Dates: start: 20120101, end: 20210901
  4. BETAMETHASONE [Suspect]
     Active Substance: BETAMETHASONE\BETAMETHASONE DIPROPIONATE
     Indication: Eczema
     Route: 065
  5. TACROLIMUS [Suspect]
     Active Substance: TACROLIMUS
     Indication: Eczema
     Route: 065
  6. FLUTICASONE [Suspect]
     Active Substance: FLUTICASONE
     Indication: Eczema
     Route: 065

REACTIONS (5)
  - Steroid dependence [Recovering/Resolving]
  - Topical steroid withdrawal reaction [Recovering/Resolving]
  - Eczema [Recovering/Resolving]
  - Skin discharge [Recovering/Resolving]
  - Erythema [Recovering/Resolving]
